FAERS Safety Report 8541139-9 (Version None)
Quarter: 2012Q3

REPORT INFORMATION
  Report Type: 
  Country: None (occurrence: None)
  Receive Date: 20120726
  Receipt Date: 20110817
  Transmission Date: 20120928
  Serious: No
  Sender: FDA-Public Use
  Company Number: US-ASTRAZENECA-2011SE49466

PATIENT
  Age: 52 Year
  Sex: Female
  Weight: 64 kg

DRUGS (1)
  1. SEROQUEL XR [Suspect]
     Indication: BIPOLAR DISORDER
     Dosage: 400 MG AT BEDTIME AND 200 MG IN THE MORNING
     Route: 048

REACTIONS (7)
  - BULIMIA NERVOSA [None]
  - DRUG DOSE OMISSION [None]
  - DEPRESSION [None]
  - TACHYPHRENIA [None]
  - HEADACHE [None]
  - INSOMNIA [None]
  - DECREASED APPETITE [None]
